FAERS Safety Report 15383576 (Version 2)
Quarter: 2024Q2

REPORT INFORMATION
  Report Type: Report from Study
  Country: TR (occurrence: TR)
  Receive Date: 20180913
  Receipt Date: 20240517
  Transmission Date: 20240716
  Serious: No
  Sender: FDA-Public Use
  Company Number: TR-SA-2018SA243916

PATIENT
  Age: 70 Year
  Weight: 80 kg

DRUGS (7)
  1. INSULIN GLARGINE [Suspect]
     Active Substance: INSULIN GLARGINE
     Indication: Diabetes mellitus
     Dosage: 14 U, QD
     Route: 058
     Dates: start: 2015
  2. INSULIN GLARGINE [Suspect]
     Active Substance: INSULIN GLARGINE
     Dosage: 14 UNK
     Route: 058
     Dates: start: 2017
  3. ASPIRIN [Concomitant]
     Active Substance: ASPIRIN
     Indication: Hypertension
     Dosage: 100 MG, QD
     Route: 048
  4. LINAGLIPTIN [Concomitant]
     Active Substance: LINAGLIPTIN
     Indication: Diabetes mellitus
     Dosage: 1000 MG, QD
     Route: 048
     Dates: start: 2017
  5. HYDREA [Concomitant]
     Active Substance: HYDROXYUREA
     Indication: Neoplasm malignant
     Dosage: 500 MG, QD
     Route: 048
     Dates: start: 201808
  6. ALLOPURINOL [Concomitant]
     Active Substance: ALLOPURINOL
     Indication: Neoplasm malignant
     Dosage: 300MG*0.5MG
     Route: 048
     Dates: start: 201808
  7. ALLOPURINOL [Concomitant]
     Active Substance: ALLOPURINOL
     Dosage: UNK

REACTIONS (9)
  - Chest discomfort [Recovered/Resolved]
  - Palpitations [Recovered/Resolved]
  - Heart rate increased [Recovered/Resolved]
  - Malaise [Recovered/Resolved]
  - Dizziness [Recovered/Resolved]
  - Tremor [Unknown]
  - Product dose omission issue [Unknown]
  - Blood glucose increased [Not Recovered/Not Resolved]
  - Intentional product misuse [Unknown]

NARRATIVE: CASE EVENT DATE: 20180827
